FAERS Safety Report 9220895 (Version 1)
Quarter: 2013Q2

REPORT INFORMATION
  Report Type: Spontaneous
  Country: KR (occurrence: KR)
  Receive Date: 20130409
  Receipt Date: 20130412
  Transmission Date: 20140414
  Serious: Yes (Death, Hospitalization)
  Sender: FDA-Public Use
  Company Number: KR-PFIZER INC-2013107673

PATIENT
  Age: 68 Year
  Sex: Male

DRUGS (13)
  1. VANCOMYCIN HCL [Suspect]
     Indication: STAPHYLOCOCCAL INFECTION
  2. PIPERACILLIN/TAZOBACTAM [Suspect]
     Indication: STAPHYLOCOCCAL INFECTION
  3. CIPROFLOXACIN [Suspect]
     Indication: STAPHYLOCOCCAL INFECTION
  4. ASPIRINE [Concomitant]
     Indication: ACUTE MYOCARDIAL INFARCTION
     Dosage: 500 MG, UNK
     Route: 048
  5. CLOPIDOGREL [Concomitant]
     Indication: ACUTE MYOCARDIAL INFARCTION
     Dosage: 600 MG, UNK
     Route: 048
  6. ATORVASTATIN [Concomitant]
     Indication: ACUTE MYOCARDIAL INFARCTION
     Dosage: 40 MG, UNK
     Route: 048
  7. ENOXAPARIN [Concomitant]
     Dosage: 60 MG, UNK
     Route: 058
  8. HEPARIN [Concomitant]
     Indication: CORONARY ARTERY STENOSIS
     Dosage: 4000 IU, UNK
     Route: 042
  9. ABCIXIMAB [Concomitant]
     Indication: CORONARY ARTERY STENOSIS
     Dosage: 0.25 MG/KG, UNK
     Route: 042
  10. ABCIXIMAB [Concomitant]
     Dosage: 0.125 UG/MIN
     Route: 041
  11. AMPICILLIN SODIUM W/SULBACTAM SODIUM [Concomitant]
     Indication: PROPHYLAXIS
  12. ZITHROMAX [Concomitant]
     Indication: PROPHYLAXIS
  13. METHYLPREDNISOLONE [Concomitant]
     Indication: PROPHYLAXIS
     Dosage: 60 MG/DAY

REACTIONS (2)
  - Drug ineffective [Fatal]
  - Septic shock [None]
